FAERS Safety Report 4536374-0 (Version None)
Quarter: 2004Q4

REPORT INFORMATION
  Report Type: 
  Country: None (occurrence: None)
  Receive Date: 20041223
  Receipt Date: 20040831
  Transmission Date: 20050328
  Serious: No
  Sender: FDA-Public Use
  Company Number: US-GLAXOSMITHKLINE-A0524055A

PATIENT
  Age: 13 Month
  Sex: Female

DRUGS (3)
  1. FLONASE [Suspect]
     Indication: DRUG USE FOR UNKNOWN INDICATION
     Route: 045
  2. HIB VACCINE [Concomitant]
     Dates: start: 20040827, end: 20040827
  3. MMR II VACCINE [Concomitant]
     Dates: start: 20040827, end: 20040827

REACTIONS (4)
  - ANOREXIA [None]
  - IRRITABILITY [None]
  - LETHARGY [None]
  - RASH [None]
